FAERS Safety Report 15791090 (Version 2)
Quarter: 2019Q3

REPORT INFORMATION
  Report Type: Report from Study
  Country: CA (occurrence: CA)
  Receive Date: 20190104
  Receipt Date: 20190903
  Transmission Date: 20191004
  Serious: Yes (Life-Threatening, Other)
  Sender: FDA-Public Use
  Company Number: PHHY2018CA199403

PATIENT
  Age: 47 Year
  Sex: Male

DRUGS (3)
  1. LEPONEX [Suspect]
     Active Substance: CLOZAPINE
     Indication: PRODUCT USED FOR UNKNOWN INDICATION
     Dosage: UNK
     Route: 065
  2. LEPONEX [Suspect]
     Active Substance: CLOZAPINE
     Dosage: 600 MG, QD
     Route: 048
  3. OLANZAPINE. [Suspect]
     Active Substance: OLANZAPINE
     Indication: THINKING ABNORMAL
     Dosage: 20 MG, QD
     Route: 048

REACTIONS (5)
  - Agranulocytosis [Unknown]
  - Adverse event [Unknown]
  - Product use in unapproved indication [Unknown]
  - White blood cell count decreased [Unknown]
  - Neutrophil count decreased [Unknown]
